FAERS Safety Report 7118390-8 (Version None)
Quarter: 2010Q4

REPORT INFORMATION
  Report Type: 
  Country: None (occurrence: None)
  Receive Date: 20101123
  Receipt Date: 20101115
  Transmission Date: 20110411
  Serious: Yes (Other)
  Sender: FDA-Public Use
  Company Number: US-US-EMD SERONO, INC.-232502J09USA

PATIENT
  Sex: Female

DRUGS (2)
  1. REBIF [Suspect]
     Indication: MULTIPLE SCLEROSIS
     Route: 058
     Dates: start: 20080320
  2. WELLBUTRIN [Concomitant]
     Indication: DEPRESSION
     Dates: start: 20010101

REACTIONS (2)
  - MIDDLE EAR EFFUSION [None]
  - PLEURISY [None]
